FAERS Safety Report 4638464-0 (Version None)
Quarter: 2005Q2

REPORT INFORMATION
  Report Type: 
  Country: None (occurrence: None)
  Receive Date: 20050418
  Receipt Date: 20050406
  Transmission Date: 20051028
  Serious: Yes (Other)
  Sender: FDA-Public Use
  Company Number: 2005056387

PATIENT
  Age: 75 Year
  Sex: Male

DRUGS (7)
  1. ALDACTONE [Suspect]
     Indication: ILL-DEFINED DISORDER
     Dosage: 50 MG (50 MG, DAILY), ORAL
     Route: 048
     Dates: start: 19911106, end: 19911231
  2. CAPTOPRIL [Concomitant]
  3. FUROSEMIDE [Concomitant]
  4. NIFEDIPINE [Concomitant]
  5. DIGOXIN [Concomitant]
  6. MIANSERIN HYDROCHLORIDE (MIANSERIN HYDROCHLORIDE) [Concomitant]
  7. BETAXOLOL HYDROCHLORIDE         (BETAXOLOL HYDROCHLORIDE) [Concomitant]

REACTIONS (2)
  - HYPERKALAEMIA [None]
  - VISUAL DISTURBANCE [None]
